FAERS Safety Report 17884107 (Version 1)
Quarter: 2020Q2

REPORT INFORMATION
  Report Type: Spontaneous
  Country: JP (occurrence: JP)
  Receive Date: 20200611
  Receipt Date: 20200611
  Transmission Date: 20200714
  Serious: Yes (Hospitalization, Other)
  Sender: FDA-Public Use
  Company Number: JP-MYLANLABS-2020M1055133

PATIENT
  Age: 77 Year
  Sex: Male

DRUGS (5)
  1. METHYLPREDNISOLONE. [Suspect]
     Active Substance: METHYLPREDNISOLONE
     Indication: COLITIS ULCERATIVE
     Dosage: 45 MILLIGRAM, QD
     Route: 042
  2. METHYLPREDNISOLONE. [Suspect]
     Active Substance: METHYLPREDNISOLONE
     Dosage: 35 MILLIGRAM, QD
     Route: 042
  3. IPILIMUMAB [Suspect]
     Active Substance: IPILIMUMAB
     Indication: MALIGNANT MELANOMA
     Dosage: 3 MILLIGRAM/KILOGRAM, SECOND-LINE THERAPY
     Route: 042
  4. PREDNISOLONE. [Suspect]
     Active Substance: PREDNISOLONE
     Indication: POLYMYALGIA RHEUMATICA
     Dosage: 15 MILLIGRAM, QD, MAINTENANCE DOSE
     Route: 065
  5. NIVOLUMAB [Suspect]
     Active Substance: NIVOLUMAB
     Indication: MALIGNANT MELANOMA
     Dosage: 3 MILLIGRAM/KILOGRAM, BIWEEKLY, FIRST-LINE THERAPY
     Route: 042

REACTIONS (6)
  - Cytomegalovirus enterocolitis [Recovering/Resolving]
  - Cytomegalovirus infection reactivation [Recovering/Resolving]
  - Anaemia [Recovering/Resolving]
  - Colitis ulcerative [Recovering/Resolving]
  - Small intestinal haemorrhage [Recovering/Resolving]
  - Polymyalgia rheumatica [Unknown]
